FAERS Safety Report 8086310-8 (Version None)
Quarter: 2012Q1

REPORT INFORMATION
  Report Type: 
  Country: None (occurrence: None)
  Receive Date: 20120128
  Receipt Date: 20110509
  Transmission Date: 20120608
  Serious: No
  Sender: FDA-Public Use
  Company Number: US-ABBOTT-11P-163-0724411-00

PATIENT
  Age: 30 Year
  Sex: Female

DRUGS (10)
  1. ENBREL [Suspect]
     Indication: PSORIASIS
  2. UNKNOWN PAIN MEDICATION [Concomitant]
     Indication: PAIN
     Dosage: AT BEDTIME
     Dates: start: 20090101
  3. UNKNOWN BIRTH CONTROL MEDICATION [Concomitant]
     Indication: PRODUCT USED FOR UNKNOWN INDICATION
     Dosage: ONE TABLET ONCE A DAY
     Route: 048
  4. UNKNOWN SEBORRHEIC PSORIASIS MEDICATION [Concomitant]
     Indication: PSORIASIS
  5. ATIVAN [Concomitant]
     Indication: ANXIETY
     Dosage: AT BEDTIME
     Route: 048
     Dates: start: 20090101
  6. WELLBUTRIN [Concomitant]
     Indication: PRODUCT USED FOR UNKNOWN INDICATION
     Dosage: 1 PILL DAILY
     Route: 048
     Dates: start: 20090101
  7. PROZAC [Concomitant]
     Indication: PRODUCT USED FOR UNKNOWN INDICATION
     Dosage: 1 PILL DAILY
     Route: 048
     Dates: start: 20090101
  8. HUMIRA [Suspect]
     Indication: PSORIASIS
     Dates: start: 20030101
  9. HUMIRA [Suspect]
     Dates: start: 20091201
  10. UNKNOWN SEBORRHEIC PSORIASIS MEDICATION [Concomitant]
     Indication: SEBORRHOEA
     Dosage: AT BEDTIME
     Dates: start: 20090101

REACTIONS (1)
  - DRUG INEFFECTIVE [None]
